FAERS Safety Report 4739227-8 (Version None)
Quarter: 2005Q3

REPORT INFORMATION
  Report Type: 
  Country: None (occurrence: None)
  Receive Date: 20050810
  Receipt Date: 20050531
  Transmission Date: 20060218
  Serious: No
  Sender: FDA-Public Use
  Company Number: US-GLAXOSMITHKLINE-A0560563A

PATIENT
  Sex: Female

DRUGS (4)
  1. PAXIL CR [Suspect]
     Indication: PAIN MANAGEMENT
     Dosage: 12.5MG PER DAY
     Route: 048
  2. SYNTHROID [Concomitant]
  3. ATIVAN [Concomitant]
  4. DALMANE [Concomitant]

REACTIONS (5)
  - ARTHRALGIA [None]
  - DYSPNOEA [None]
  - LOSS OF LIBIDO [None]
  - THYROID DISORDER [None]
  - VISION BLURRED [None]
